FAERS Safety Report 6629609-1 (Version None)
Quarter: 2010Q1

REPORT INFORMATION
  Report Type: 
  Country: None (occurrence: None)
  Receive Date: 20100311
  Receipt Date: 20100226
  Transmission Date: 20100710
  Serious: Yes (Hospitalization, Other)
  Sender: FDA-Public Use
  Company Number: US-ELI_LILLY_AND_COMPANY-US201003000991

PATIENT
  Sex: Female

DRUGS (5)
  1. FORTEO [Suspect]
     Indication: OSTEOPOROSIS
     Dosage: 20 UG, DAILY (1/D)
     Dates: start: 20090901
  2. POTASSIUM [Concomitant]
  3. CALCIUM                                 /N/A/ [Concomitant]
  4. VITAMINS [Concomitant]
  5. VITAMIN D [Concomitant]

REACTIONS (6)
  - ARTHROPATHY [None]
  - ATRIAL FIBRILLATION [None]
  - CRYING [None]
  - GAIT DISTURBANCE [None]
  - MUSCULOSKELETAL PAIN [None]
  - PAIN [None]
